FAERS Safety Report 23060763 (Version 2)
Quarter: 2023Q4

REPORT INFORMATION
  Report Type: Spontaneous
  Country: ES (occurrence: ES)
  Receive Date: 20231012
  Receipt Date: 20231016
  Transmission Date: 20240109
  Serious: Yes (Life-Threatening, Other)
  Sender: FDA-Public Use
  Company Number: None

PATIENT
  Age: 48 Year
  Sex: Male

DRUGS (12)
  1. TRODELVY [Suspect]
     Active Substance: SACITUZUMAB GOVITECAN-HZIY
     Indication: Bladder cancer
     Route: 042
     Dates: start: 20230619, end: 20230831
  2. ESLICARBAZEPINE ACETATE [Concomitant]
     Active Substance: ESLICARBAZEPINE ACETATE
     Indication: Meniscus injury
     Dosage: 800 MG DINNER
     Route: 048
     Dates: start: 20230313
  3. ENALAPRIL DURBAN [Concomitant]
     Indication: Hypertension
     Dosage: 20 MG BREAKFAST
     Route: 048
     Dates: start: 20141205
  4. HIDRATHEA [Concomitant]
     Indication: Sjogren^s syndrome
     Dosage: 1 GTT DROPS, Q8H
     Route: 050
     Dates: start: 20230313
  5. DEXAMETHASONE [Concomitant]
     Active Substance: DEXAMETHASONE
     Indication: Cellulitis
     Dosage: 4 MG BREAKFAST, LUNCH
     Route: 048
     Dates: start: 20230530
  6. ALPRAZOLAM CINFA [Concomitant]
     Indication: Nephrolithiasis
     Dosage: 0.25 MG, Q8H
     Route: 048
     Dates: start: 20230313
  7. MORPHINE SULFATE [Concomitant]
     Active Substance: MORPHINE SULFATE
     Indication: Meniscus injury
     Dosage: 30 MG BREAKFAST, DINNER
     Route: 048
     Dates: start: 20230626
  8. DULOXETINE [Concomitant]
     Active Substance: DULOXETINE
     Indication: Meniscus injury
     Dosage: 60 MG DINNER
     Route: 048
     Dates: start: 20230125
  9. PANTOPRAZOLE SODIUM [Concomitant]
     Active Substance: PANTOPRAZOLE SODIUM
     Indication: Gastrooesophageal reflux disease
     Dosage: 20 MG BREAKFAST, DINNER
     Route: 048
     Dates: start: 20181011
  10. NUTAVANT PLUS [Concomitant]
     Indication: Bladder cancer
     Dosage: 250 ML BREAKFAST, LUNCH AND DINNER
     Route: 048
     Dates: start: 20221025
  11. LAMICTAL [Concomitant]
     Active Substance: LAMOTRIGINE
     Indication: Meniscus injury
     Dosage: 25 MG BREAKFAST
     Route: 048
     Dates: start: 20230620
  12. FOLI DOCE [Concomitant]
     Indication: Nephrolithiasis
     Dosage: 1 TABLET BREAKFAST
     Route: 048
     Dates: start: 20230208

REACTIONS (1)
  - Pancreatitis acute [Not Recovered/Not Resolved]

NARRATIVE: CASE EVENT DATE: 20230915
